FAERS Safety Report 11909673 (Version 1)
Quarter: 2016Q1

REPORT INFORMATION
  Report Type: Spontaneous
  Country: US (occurrence: None)
  Receive Date: 20160111
  Receipt Date: 20160111
  Transmission Date: 20160526
  Serious: No
  Sender: FDA-Public Use
  Company Number: None

PATIENT
  Age: 38 Year
  Sex: Female
  Weight: 65.77 kg

DRUGS (1)
  1. LATISSE [Suspect]
     Active Substance: BIMATOPROST
     Indication: GROWTH OF EYELASHES
     Dosage: 1 DROP FOR BOTH LASHLINES ONCE DAILY  APPLIED TO A SURFACE, USUALLY THE SKIN

REACTIONS (1)
  - Madarosis [None]

NARRATIVE: CASE EVENT DATE: 20160110
